FAERS Safety Report 14122021 (Version 1)
Quarter: 2017Q4

REPORT INFORMATION
  Report Type: Spontaneous
  Country: US (occurrence: US)
  Receive Date: 20171024
  Receipt Date: 20171024
  Transmission Date: 20180321
  Serious: No
  Sender: FDA-Public Use
  Company Number: US-SA-2017SA040048

PATIENT
  Age: 60 Year
  Sex: Female

DRUGS (1)
  1. LEFLUNOMIDE WINTHROP [Suspect]
     Active Substance: LEFLUNOMIDE
     Indication: POLYMYALGIA RHEUMATICA
     Route: 065
     Dates: start: 201506

REACTIONS (4)
  - Hypoaesthesia [Not Recovered/Not Resolved]
  - Neuropathy peripheral [Not Recovered/Not Resolved]
  - Feeling abnormal [Not Recovered/Not Resolved]
  - Paraesthesia [Not Recovered/Not Resolved]
